FAERS Safety Report 10713985 (Version 2)
Quarter: 2015Q2

REPORT INFORMATION
  Report Type: Spontaneous
  Country: US (occurrence: US)
  Receive Date: 20150115
  Receipt Date: 20150408
  Transmission Date: 20150821
  Serious: No
  Sender: FDA-Public Use
  Company Number: US-ASTELLAS-2014US020903

PATIENT
  Sex: Female

DRUGS (2)
  1. MYRBETRIQ [Suspect]
     Active Substance: MIRABEGRON
     Indication: POLLAKIURIA
  2. MYRBETRIQ [Suspect]
     Active Substance: MIRABEGRON
     Indication: URINARY RETENTION
     Route: 065
     Dates: start: 20141216, end: 201501

REACTIONS (4)
  - Drug ineffective [Unknown]
  - Dysuria [Unknown]
  - Insomnia [Recovered/Resolved]
  - Constipation [Recovered/Resolved]

NARRATIVE: CASE EVENT DATE: 20141216
